FAERS Safety Report 9616762 (Version 2)
Quarter: 2013Q4

REPORT INFORMATION
  Report Type: Spontaneous
  Country: US (occurrence: US)
  Receive Date: 20131011
  Receipt Date: 20131011
  Transmission Date: 20140711
  Serious: Yes (Death, Life-Threatening, Hospitalization)
  Sender: FDA-Public Use
  Company Number: US-SA-POMP-1003236

PATIENT
  Age: 47 Year
  Sex: Female
  Weight: 41.5 kg

DRUGS (1)
  1. LUMIZYME [Suspect]
     Indication: GLYCOGEN STORAGE DISEASE TYPE II
     Dosage: 1000 MG, Q2W
     Route: 042
     Dates: start: 20100804

REACTIONS (5)
  - Haemorrhagic stroke [Fatal]
  - Coma [Fatal]
  - Respiratory arrest [Fatal]
  - Brain injury [Fatal]
  - Epistaxis [Recovered/Resolved with Sequelae]
